FAERS Safety Report 11632699 (Version 2)
Quarter: 2015Q4

REPORT INFORMATION
  Report Type: Spontaneous
  Country: JP (occurrence: JP)
  Receive Date: 20151015
  Receipt Date: 20151216
  Transmission Date: 20160304
  Serious: Yes (Other)
  Sender: FDA-Public Use
  Company Number: JP-PFIZER INC-2015334125

PATIENT

DRUGS (8)
  1. AZULFIDINE EN-TABS [Suspect]
     Active Substance: SULFASALAZINE
     Indication: POLYMYALGIA RHEUMATICA
     Dosage: UNK
     Route: 048
  2. PREDNISOLONE. [Concomitant]
     Active Substance: PREDNISOLONE
  3. AMLODIPINE [Concomitant]
     Active Substance: AMLODIPINE BESYLATE
  4. OLMETEC [Concomitant]
     Active Substance: OLMESARTAN MEDOXOMIL
  5. FERROMIA [Concomitant]
     Active Substance: FERROUS CITRATE
  6. ATORVASTATIN [Concomitant]
     Active Substance: ATORVASTATIN
  7. VOGLIBOSE [Concomitant]
     Active Substance: VOGLIBOSE
  8. BONALON [Concomitant]
     Active Substance: ALENDRONATE SODIUM

REACTIONS (6)
  - Product use issue [Recovered/Resolved]
  - Gait disturbance [Recovered/Resolved]
  - Brain oedema [Unknown]
  - Myelitis [Unknown]
  - Dizziness [Recovered/Resolved]
  - Rash [Recovered/Resolved]
